FAERS Safety Report 4309078-7 (Version None)
Quarter: 2004Q1

REPORT INFORMATION
  Report Type: 
  Country: None (occurrence: None)
  Receive Date: 20040227
  Receipt Date: 20040213
  Transmission Date: 20041129
  Serious: Yes (Hospitalization)
  Sender: FDA-Public Use
  Company Number: DSA_24007_2004

PATIENT
  Age: 29 Year
  Sex: Male

DRUGS (5)
  1. LORAZEPAM [Suspect]
     Dosage: 5 MG QD PO
     Route: 048
     Dates: start: 20030425, end: 20030603
  2. ATHYMIL [Suspect]
     Dosage: 30 MG QD PO
     Route: 048
     Dates: start: 20030505, end: 20030523
  3. HALDOL [Suspect]
     Dosage: 20 MG QD PO
     Route: 048
     Dates: start: 20030425, end: 20030505
  4. LARGACTIL [Suspect]
     Dosage: 200 MG QD PO
     Route: 048
     Dates: start: 20030425, end: 20030521
  5. RISPERDAL [Suspect]
     Dosage: 10 MG QD PO
     Route: 048
     Dates: start: 20030428, end: 20030531

REACTIONS (4)
  - CHOLESTASIS [None]
  - HEPATIC FIBROSIS [None]
  - HEPATITIS GRANULOMATOUS [None]
  - PORTAL HYPERTENSION [None]
